FAERS Safety Report 4448228-9 (Version None)
Quarter: 2004Q3

REPORT INFORMATION
  Report Type: 
  Country: None (occurrence: None)
  Receive Date: 20040813
  Receipt Date: 20040621
  Transmission Date: 20050211
  Serious: Yes (Other)
  Sender: FDA-Public Use
  Company Number: SO4-USA-03705-01

PATIENT

DRUGS (3)
  1. NAMENDA [Suspect]
     Dosage: 10 MG BID PO
     Route: 048
  2. NAMENDA [Suspect]
     Dosage: 10 MG QD PO
     Route: 048
  3. NAMENDA [Suspect]

REACTIONS (3)
  - DELIRIUM [None]
  - DIZZINESS [None]
  - LOSS OF CONSCIOUSNESS [None]
